FAERS Safety Report 5565095-0 (Version None)
Quarter: 2007Q4

REPORT INFORMATION
  Report Type: 
  Country: None (occurrence: None)
  Receive Date: 20071213
  Receipt Date: 20071203
  Transmission Date: 20080405
  Serious: Yes (Hospitalization, Other)
  Sender: FDA-Public Use
  Company Number: 230935J07USA

PATIENT
  Age: 63 Year
  Sex: Female
  Weight: 73.0291 kg

DRUGS (8)
  1. REBIF [Suspect]
     Indication: MULTIPLE SCLEROSIS
     Dosage: 44 MCG, 3 IN 1 WEEKS, SUBCUTANEOUS
     Route: 058
     Dates: start: 20060602
  2. NABUMETONE [Concomitant]
  3. OMEPRAZOLE [Concomitant]
  4. WELLBUTRIN [Concomitant]
  5. REQUIP [Concomitant]
  6. BACLOFEN [Concomitant]
  7. REGLAN [Concomitant]
  8. ROZEREM (ALL OTHER THERAPEUTIC PRODUCTS) [Concomitant]

REACTIONS (1)
  - ARTHROPATHY [None]
